FAERS Safety Report 11459242 (Version 2)
Quarter: 2015Q3

REPORT INFORMATION
  Report Type: Spontaneous
  Country: US (occurrence: US)
  Receive Date: 20150904
  Receipt Date: 20150929
  Transmission Date: 20151125
  Serious: Yes (Other)
  Sender: FDA-Public Use
  Company Number: US-PFIZER INC-2015296421

PATIENT
  Sex: Female

DRUGS (2)
  1. CYTOXAN [Suspect]
     Active Substance: CYCLOPHOSPHAMIDE
     Indication: INFLAMMATORY CARCINOMA OF THE BREAST
     Dosage: UNK
     Dates: start: 2006
  2. ADRIAMYCIN [Suspect]
     Active Substance: DOXORUBICIN HYDROCHLORIDE
     Indication: INFLAMMATORY CARCINOMA OF THE BREAST
     Dosage: UNK (1 GRAM VIAL (LYOPHILIZED)(CYCLOPHOSPHAMIDE, MONOHYDRATE)()
     Dates: start: 2006

REACTIONS (1)
  - Neutropenia [Not Recovered/Not Resolved]
